FAERS Safety Report 9105836 (Version 2)
Quarter: 2013Q1

REPORT INFORMATION
  Report Type: Report from Study
  Country: CA (occurrence: CA)
  Receive Date: 20130220
  Receipt Date: 20130326
  Transmission Date: 20140127
  Serious: Yes (Hospitalization)
  Sender: FDA-Public Use
  Company Number: CA-009507513-1302CAN005155

PATIENT
  Age: 79 Year
  Sex: Male
  Weight: 88.2 kg

DRUGS (16)
  1. DEXAMETHASONE [Suspect]
     Indication: PLASMA CELL MYELOMA
     Dosage: 20 MG DAYS 1,8,15+22 OF EACH 28 DAY CYCLE
     Route: 048
     Dates: start: 20100520
  2. DEXAMETHASONE [Suspect]
     Dosage: 12 MG DAYS 1,8,15+22 OF EACH DAY CYCLE
     Route: 048
     Dates: start: 20121219
  3. CC-5013 [Suspect]
     Indication: PLASMA CELL MYELOMA
     Dosage: 25 MG, 21 IN 28 D
     Route: 048
     Dates: start: 20100520
  4. CC-5013 [Suspect]
     Dosage: 25 MG, 21 IN 28D
     Route: 048
     Dates: start: 20121219
  5. CYANOCOBALAMIN [Concomitant]
     Indication: SUPPLEMENTATION THERAPY
     Dosage: 1000 MG, QD
     Route: 048
     Dates: start: 20130105
  6. ASPIRIN [Concomitant]
     Indication: PROPHYLAXIS
     Dosage: 81 MG, QD
     Route: 048
     Dates: start: 20100520
  7. TYLENOL EXTRA STRENGTH [Concomitant]
     Indication: BACK PAIN
     Dosage: 650 MG, PRN
     Route: 048
     Dates: start: 2000
  8. METFORMIN [Concomitant]
     Indication: DIABETES MELLITUS
     Dosage: 500 MG, BID
     Route: 048
     Dates: start: 2007
  9. GLYBURIDE [Concomitant]
     Indication: DIABETES MELLITUS
     Dosage: 50 MG, BID
     Route: 048
     Dates: start: 1985
  10. FLOMAX (MORNIFLUMATE) [Concomitant]
     Indication: NOCTURIA
     Dosage: 0.4 MG, QD
     Route: 048
     Dates: start: 200504
  11. ENALAPRIL MALEATE [Concomitant]
     Indication: HYPERTENSION
     Dosage: 2.5 MG, QD
     Route: 048
     Dates: start: 201004
  12. BENADRYL [Concomitant]
     Indication: RASH
     Dosage: 50 MG QHS
     Route: 048
     Dates: start: 20100706, end: 20101103
  13. BENADRYL [Concomitant]
     Dosage: 50 MG QHS
     Route: 048
     Dates: start: 20101204
  14. ZOPICLONE [Concomitant]
     Indication: INSOMNIA
     Dosage: 3.75-7.5 QHS MG, UNK
     Route: 048
     Dates: start: 20111007
  15. IMODIUM [Concomitant]
     Indication: DIARRHOEA
     Dosage: 2 MG, PRN
     Route: 048
     Dates: start: 20110928
  16. GLICLAZIDE [Concomitant]
     Indication: DIABETES MELLITUS
     Dosage: 30 MG, QD
     Route: 048
     Dates: start: 20111129

REACTIONS (1)
  - Chronic obstructive pulmonary disease [Recovered/Resolved]
